FAERS Safety Report 9469744 (Version 2)
Quarter: 2013Q3

REPORT INFORMATION
  Report Type: Report from Study
  Country: US (occurrence: US)
  Receive Date: 20130822
  Receipt Date: 20130826
  Transmission Date: 20140515
  Serious: Yes (Death)
  Sender: FDA-Public Use
  Company Number: PHEH2013US017804

PATIENT
  Age: 51 Year
  Sex: Female

DRUGS (8)
  1. GLEEVEC [Suspect]
     Indication: ACUTE MYELOID LEUKAEMIA
     Dosage: 100 MG, DAILY
     Route: 048
     Dates: start: 20130226
  2. SYNTHROID [Concomitant]
     Dosage: UNK UKN, UNK
  3. RAPAMUNE [Concomitant]
     Dosage: UNK UKN, UNK
  4. MYCOPHENOLATE [Concomitant]
     Dosage: UNK UKN, UNK
  5. METOPROLOL [Concomitant]
     Dosage: UNK UKN, UNK
  6. TRIAMTERENE [Concomitant]
     Dosage: UNK UKN, UNK
  7. OXYCODONE [Concomitant]
     Dosage: UNK UKN, UNK
  8. METFORMIN [Concomitant]
     Dosage: UNK UKN, UNK

REACTIONS (1)
  - Death [Fatal]
